FAERS Safety Report 4771102-5 (Version None)
Quarter: 2005Q3

REPORT INFORMATION
  Report Type: 
  Country: None (occurrence: None)
  Receive Date: 20050914
  Receipt Date: 20050901
  Transmission Date: 20060218
  Serious: Yes (Other)
  Sender: FDA-Public Use
  Company Number: 2005123287

PATIENT
  Sex: Male

DRUGS (1)
  1. BENADRYL [Suspect]
     Indication: ARTHROPOD STING
     Dosage: 3 ML ONCE, ORAL
     Route: 048
     Dates: start: 20050901, end: 20050901

REACTIONS (3)
  - ABASIA [None]
  - MOVEMENT DISORDER [None]
  - UNEVALUABLE EVENT [None]
